FAERS Safety Report 21574787 (Version 1)
Quarter: 2022Q4

REPORT INFORMATION
  Report Type: Spontaneous
  Country: US (occurrence: US)
  Receive Date: 20221110
  Receipt Date: 20221110
  Transmission Date: 20230112
  Serious: No
  Sender: FDA-Public Use
  Company Number: US-JNJFOC-20221107159

PATIENT
  Sex: Female

DRUGS (1)
  1. TYLENOL 8 HR ARTHRITIS PAIN [Suspect]
     Active Substance: ACETAMINOPHEN
     Indication: Neck pain
     Dosage: 2 CAPLETS EVERY DAY. TWICE A DAY
     Route: 065
     Dates: start: 20221102

REACTIONS (2)
  - Illness [Unknown]
  - Incorrect dose administered [Unknown]
